FAERS Safety Report 18625431 (Version 1)
Quarter: 2020Q4

REPORT INFORMATION
  Report Type: Report from Study
  Country: NL (occurrence: NL)
  Receive Date: 20201216
  Receipt Date: 20201216
  Transmission Date: 20210114
  Serious: Yes (Hospitalization)
  Sender: FDA-Public Use
  Company Number: NL-MYLANLABS-2020M1103509

PATIENT
  Age: 78 Year
  Sex: Female
  Weight: 81 kg

DRUGS (12)
  1. PARACETAMOL [Suspect]
     Active Substance: ACETAMINOPHEN
     Indication: PRODUCT USED FOR UNKNOWN INDICATION
     Dosage: 1 DOSAGE FORM
  2. ASPIRIN. [Concomitant]
     Active Substance: ASPIRIN
     Dosage: UNK
  3. KETOCONAZOL [Concomitant]
     Active Substance: KETOCONAZOLE
     Dosage: UNK
  4. MICONAZOL                          /00310801/ [Concomitant]
     Active Substance: MICONAZOLE
     Dosage: UNK
  5. LOSARTAN AND HYDROCHLOROTHIAZIDE [Concomitant]
     Active Substance: HYDROCHLOROTHIAZIDE\LOSARTAN POTASSIUM
     Dosage: UNK
  6. BETAMETHASON                       /00008501/ [Concomitant]
     Active Substance: BETAMETHASONE
     Dosage: UNK
  7. TRAMADOL. [Concomitant]
     Active Substance: TRAMADOL
     Dosage: UNK
  8. PARACETAMOL [Concomitant]
     Active Substance: ACETAMINOPHEN
     Dosage: UNK
  9. TRIMETHOPRIM. [Concomitant]
     Active Substance: TRIMETHOPRIM
     Dosage: UNK
  10. TRIMETHOPRIM. [Suspect]
     Active Substance: TRIMETHOPRIM
     Indication: PRODUCT USED FOR UNKNOWN INDICATION
     Dosage: 1 DOSAGE FORM
  11. PARACETAMOL CODEINE [Concomitant]
     Active Substance: ACETAMINOPHEN\CODEINE PHOSPHATE
     Dosage: UNK
  12. MICONAZOL                          /00310801/ [Concomitant]
     Active Substance: MICONAZOLE
     Dosage: UNK

REACTIONS (3)
  - Postoperative wound infection [Recovered/Resolved]
  - Thrombocytopenia [Recovered/Resolved]
  - Haematopoietic neoplasm [Recovered/Resolved]
